FAERS Safety Report 20912451 (Version 2)
Quarter: 2022Q3

REPORT INFORMATION
  Report Type: Spontaneous
  Country: US (occurrence: US)
  Receive Date: 20220603
  Receipt Date: 20220909
  Transmission Date: 20221027
  Serious: No
  Sender: FDA-Public Use
  Company Number: US-ASCENDIS PHARMA-2022US000428

PATIENT

DRUGS (1)
  1. SKYTROFA [Suspect]
     Active Substance: LONAPEGSOMATROPIN-TCGD
     Indication: Hypopituitarism
     Dosage: 4.3MG WEEKLY
     Route: 058
     Dates: start: 20220407

REACTIONS (3)
  - Product dose omission issue [Unknown]
  - Device malfunction [Unknown]
  - Cough [Unknown]

NARRATIVE: CASE EVENT DATE: 20220606
